FAERS Safety Report 24558240 (Version 2)
Quarter: 2025Q1

REPORT INFORMATION
  Report Type: Report from Study
  Country: US (occurrence: US)
  Receive Date: 20241028
  Receipt Date: 20250305
  Transmission Date: 20250408
  Serious: Yes (Hospitalization, Other)
  Sender: BOEHRINGER INGELHEIM
  Company Number: US-BoehringerIngelheim-2024-BI-058232

PATIENT
  Age: 68 Year
  Sex: Male

DRUGS (2)
  1. OFEV [Suspect]
     Active Substance: NINTEDANIB
     Indication: Idiopathic pulmonary fibrosis
  2. OFEV [Suspect]
     Active Substance: NINTEDANIB
     Dates: start: 20240615

REACTIONS (8)
  - Arterial therapeutic procedure [Recovered/Resolved]
  - Procedural haemorrhage [Recovered/Resolved]
  - Wound closure [Recovered/Resolved]
  - Idiopathic pulmonary fibrosis [Not Recovered/Not Resolved]
  - Arteriosclerosis [Not Recovered/Not Resolved]
  - Impaired healing [Unknown]
  - Gait disturbance [Not Recovered/Not Resolved]
  - Balance disorder [Not Recovered/Not Resolved]

NARRATIVE: CASE EVENT DATE: 20240601
